FAERS Safety Report 4381708-3 (Version None)
Quarter: 2004Q2

REPORT INFORMATION
  Report Type: 
  Country: None (occurrence: None)
  Receive Date: 20040614
  Receipt Date: 20040102
  Transmission Date: 20050107
  Serious: Yes (Hospitalization)
  Sender: FDA-Public Use
  Company Number: 2003182884US

PATIENT
  Sex: Female

DRUGS (1)
  1. ZYVOX [Suspect]
     Indication: OSTEOMYELITIS CHRONIC
     Dosage: 600 MG, BID, ORAL
     Route: 048
     Dates: start: 20030910, end: 20031010

REACTIONS (1)
  - PANCYTOPENIA [None]
